FAERS Safety Report 10079424 (Version 1)
Quarter: 2014Q2

REPORT INFORMATION
  Report Type: Report from Study
  Country: BR (occurrence: BR)
  Receive Date: 20140415
  Receipt Date: 20140415
  Transmission Date: 20141212
  Serious: Yes (Other)
  Sender: FDA-Public Use
  Company Number: PHHY2014BR045808

PATIENT
  Age: 71 Year
  Sex: Male
  Weight: 87 kg

DRUGS (3)
  1. DIOVAN [Suspect]
     Indication: HYPERTENSION
     Dosage: 2 DF (80 MG), DAILY
     Route: 048
     Dates: end: 20140409
  2. DIOVAN [Suspect]
     Dosage: 160 MG, UNK
     Dates: start: 20140410
  3. SINVASTACOR [Concomitant]
     Indication: BLOOD CHOLESTEROL ABNORMAL
     Dosage: UNK UKN, UNK

REACTIONS (3)
  - Aortic valve disease [Recovering/Resolving]
  - Aortic calcification [Recovering/Resolving]
  - Hypertension [Recovering/Resolving]
